FAERS Safety Report 18888802 (Version 4)
Quarter: 2024Q2

REPORT INFORMATION
  Report Type: Spontaneous
  Country: US (occurrence: US)
  Receive Date: 20210213
  Receipt Date: 20240408
  Transmission Date: 20240716
  Serious: Yes (Hospitalization, Other)
  Sender: FDA-Public Use
  Company Number: US-BEH-2021128001

PATIENT
  Age: 45 Year
  Sex: Female

DRUGS (13)
  1. ALBURX [Suspect]
     Active Substance: ALBUMIN HUMAN
     Indication: Malignant ascites
     Dosage: 100 MILLILITER, QW PRN
     Route: 042
     Dates: start: 20201218, end: 20210202
  2. ACETAMINOPHEN [Concomitant]
     Active Substance: ACETAMINOPHEN
     Indication: Pain
     Dosage: 650 MILLIGRAM, Q4H, PRN
     Route: 048
     Dates: start: 20200108
  3. ALBUTEROL SULFATE [Concomitant]
     Active Substance: ALBUTEROL SULFATE
     Indication: Wheezing
     Dosage: 1 PUFF EVERY 6 HOURS PRN
     Route: 055
     Dates: start: 20201013
  4. ALBUTEROL SULFATE [Concomitant]
     Active Substance: ALBUTEROL SULFATE
     Indication: Cough
  5. CALCIUM CARBONATE [Concomitant]
     Active Substance: CALCIUM CARBONATE
     Indication: Dyspepsia
     Dosage: 750 MILLIGRAM, TID PRN
     Route: 048
     Dates: start: 20201207
  6. DEXAMETHASONE [Concomitant]
     Active Substance: DEXAMETHASONE
     Dosage: 4 MILLIGRAM, BID
     Route: 048
     Dates: start: 20201228
  7. LACTULOSE [Concomitant]
     Active Substance: LACTULOSE
     Indication: Constipation
     Dosage: 15-30 ML BID PRN
     Route: 048
  8. LIDOCAINE\PRILOCAINE [Concomitant]
     Active Substance: LIDOCAINE\PRILOCAINE
     Dosage: 1 DOSAGE FORM
     Route: 061
     Dates: start: 20200928
  9. METOCLOPRAMIDE [Concomitant]
     Active Substance: METOCLOPRAMIDE
     Dosage: 10 MILLIGRAM, TID
     Route: 048
  10. ONDANSETRON [Concomitant]
     Active Substance: ONDANSETRON
     Indication: Nausea
     Dosage: 8 MILLIGRAM, TID PRN
     Route: 048
     Dates: start: 20201013
  11. RIVAROXABAN [Concomitant]
     Active Substance: RIVAROXABAN
     Dosage: 20 MILLIGRAM, START TAKING AFTER XARELTO, 15 MG BID FOR 21 DAYS
     Route: 048
     Dates: start: 20200707, end: 20210203
  12. TRAMADOL [Concomitant]
     Active Substance: TRAMADOL\TRAMADOL HYDROCHLORIDE
     Indication: Pain
     Dosage: 50 MILLIGRAM, Q4H, PRN
     Route: 048
     Dates: start: 20200504
  13. TRIAMCINOLONE [Concomitant]
     Active Substance: TRIAMCINOLONE
     Indication: Hypersensitivity
     Dosage: 2 SPRAY QD PRN
     Route: 045
     Dates: start: 20161208

REACTIONS (11)
  - Anaphylactoid reaction [Recovered/Resolved]
  - Urinary tract infection bacterial [Recovered/Resolved]
  - Citrobacter sepsis [Recovered/Resolved]
  - Back pain [Recovered/Resolved]
  - Chest pain [Recovered/Resolved]
  - Chills [Recovered/Resolved]
  - Tachycardia [Recovered/Resolved]
  - Product contamination [Recovered/Resolved]
  - Dyspnoea [Recovered/Resolved]
  - Unresponsive to stimuli [Recovered/Resolved]
  - Transfusion reaction [Recovered/Resolved]

NARRATIVE: CASE EVENT DATE: 20210202
